FAERS Safety Report 23286371 (Version 2)
Quarter: 2023Q4

REPORT INFORMATION
  Report Type: Spontaneous
  Country: AR (occurrence: AR)
  Receive Date: 20231212
  Receipt Date: 20231212
  Transmission Date: 20240109
  Serious: No
  Sender: FDA-Public Use
  Company Number: AR-PFIZER INC-PV202300191723

PATIENT
  Age: 10 Year
  Sex: Female

DRUGS (2)
  1. GENOTROPIN [Suspect]
     Active Substance: SOMATROPIN
     Indication: Short stature
     Dosage: 1.5 TO 2.0 MG, 7 TIMES PER WEEK
     Dates: start: 20211208
  2. GENOTROPIN [Suspect]
     Active Substance: SOMATROPIN
     Dosage: 1.6 MG, 5 TIMES PER WEEK AND 1.8 MG 2 TIMES PER WEEK

REACTIONS (2)
  - Incorrect dose administered by device [Unknown]
  - Device leakage [Unknown]
